FAERS Safety Report 26132575 (Version 1)
Quarter: 2025Q4

REPORT INFORMATION
  Report Type: Spontaneous
  Country: US (occurrence: US)
  Receive Date: 20251208
  Receipt Date: 20251208
  Transmission Date: 20260117
  Serious: Yes (Death)
  Sender: ABBVIE
  Company Number: US-PFIZER INC-202500234986

PATIENT
  Age: 40 Year
  Sex: Male

DRUGS (15)
  1. AVIBACTAM SODIUM\CEFTAZIDIME [Suspect]
     Active Substance: AVIBACTAM SODIUM\CEFTAZIDIME
     Indication: Pseudomonas infection
     Route: 065
  2. AZITHROMYCIN [Suspect]
     Active Substance: AZITHROMYCIN
     Indication: Pseudomonas infection
     Dosage: UNK
     Route: 065
  3. CIPROFLOXACIN [Suspect]
     Active Substance: CIPROFLOXACIN
     Indication: Pseudomonas infection
     Dosage: UNK
     Route: 065
  4. TOBRAMYCIN [Suspect]
     Active Substance: TOBRAMYCIN
     Indication: Pseudomonas infection
     Dosage: UNK
     Route: 042
  5. CEFTOLOZANE SULFATE\TAZOBACTAM SODIUM [Suspect]
     Active Substance: CEFTOLOZANE SULFATE\TAZOBACTAM SODIUM
     Indication: Pneumonia necrotising
     Dosage: UNK
     Route: 065
     Dates: start: 20241213, end: 20241226
  6. CEFEPIME [Suspect]
     Active Substance: CEFEPIME HYDROCHLORIDE
     Indication: Pneumonia necrotising
     Dosage: UNK
     Route: 065
     Dates: start: 202503, end: 20250328
  7. AMPICILLIN [Suspect]
     Active Substance: AMPICILLIN
     Indication: Pneumonia necrotising
     Dosage: UNK
     Route: 065
  8. IMIPENEM [Suspect]
     Active Substance: IMIPENEM
     Indication: Pseudomonas infection
     Dosage: UNK
     Route: 065
     Dates: start: 20241226, end: 202501
  9. IMIPENEM [Suspect]
     Active Substance: IMIPENEM
     Indication: Pseudomonas infection
     Dosage: UNK
     Route: 065
     Dates: start: 202502, end: 202503
  10. RELEBACTAM [Suspect]
     Active Substance: RELEBACTAM
     Indication: Pseudomonas infection
     Dosage: UNK
     Route: 065
     Dates: start: 202502, end: 202503
  11. RELEBACTAM [Suspect]
     Active Substance: RELEBACTAM
     Indication: Pseudomonas infection
     Dosage: UNK
     Route: 065
     Dates: start: 20241226, end: 202501
  12. ZIDEBACTAM [Suspect]
     Active Substance: ZIDEBACTAM
     Indication: Pneumonia necrotising
     Dosage: UNK
     Route: 065
     Dates: start: 202503, end: 20250328
  13. MEROPENEM [Suspect]
     Active Substance: MEROPENEM
     Indication: Pseudomonas infection
     Dosage: UNK
     Route: 065
     Dates: start: 202412, end: 20241213
  14. CEFIDEROCOL [Suspect]
     Active Substance: CEFIDEROCOL
     Indication: Pneumonia necrotising
     Dosage: UNK
     Route: 042
     Dates: start: 202501, end: 202502
  15. ERYTHROMYCIN [Suspect]
     Active Substance: ERYTHROMYCIN
     Indication: Pseudomonas infection
     Dosage: UNK
     Route: 065

REACTIONS (1)
  - Pathogen resistance [Fatal]
